FAERS Safety Report 23013334 (Version 6)
Quarter: 2024Q3

REPORT INFORMATION
  Report Type: Report from Study
  Country: CA (occurrence: CA)
  Receive Date: 20230930
  Receipt Date: 20240829
  Transmission Date: 20241017
  Serious: Yes (Other)
  Sender: ROCHE
  Company Number: CA-ROCHE-3428558

PATIENT
  Age: 42 Year
  Sex: Female

DRUGS (1)
  1. OCREVUS [Suspect]
     Active Substance: OCRELIZUMAB
     Indication: Relapsing-remitting multiple sclerosis
     Dosage: 300 MG AT DAY 0 AND 14, THEN 600 MG EVERY 6 MONTHS
     Route: 042
     Dates: start: 20230323

REACTIONS (1)
  - SARS-CoV-2 test positive [Recovering/Resolving]

NARRATIVE: CASE EVENT DATE: 20230924
